FAERS Safety Report 10014825 (Version 1)
Quarter: 2014Q1

REPORT INFORMATION
  Report Type: Spontaneous
  Country: FR (occurrence: FR)
  Receive Date: 20140317
  Receipt Date: 20140317
  Transmission Date: 20141002
  Serious: Yes (Hospitalization)
  Sender: FDA-Public Use
  Company Number: PHHY2014FR031059

PATIENT
  Age: 77 Year
  Sex: Female
  Weight: 65 kg

DRUGS (7)
  1. ESIDREX [Suspect]
     Indication: HYPERTENSION
     Dosage: 25 MG, QD
     Route: 048
  2. ZANEXTRA [Concomitant]
     Dosage: (10/20 MG), QD
  3. IMOVANE [Concomitant]
     Dosage: 7.5 MG, DAILY
  4. FLECAINE LP [Concomitant]
     Dosage: 100 MG, QD
  5. CELECTOL [Concomitant]
     Dosage: 200 MG, UNK
  6. FENOFIBRATE [Concomitant]
     Dosage: 160 MG, DAILY
  7. KLIPAL CODEINE [Concomitant]
     Dosage: 1 DF (300/25 MG), UNK

REACTIONS (5)
  - Hypochloraemia [Recovered/Resolved]
  - Hyponatraemia [Recovered/Resolved]
  - Hypokalaemia [Recovered/Resolved]
  - Hypomagnesaemia [Recovered/Resolved]
  - Asthenia [Recovered/Resolved]
